FAERS Safety Report 5097981-2 (Version None)
Quarter: 2006Q3

REPORT INFORMATION
  Report Type: 
  Country: None (occurrence: None)
  Receive Date: 20060905
  Receipt Date: 20060905
  Transmission Date: 20061208
  Serious: Yes (Death, Disabling, Other)
  Sender: FDA-Public Use
  Company Number: None

PATIENT
  Age: 10 Year
  Sex: Female

DRUGS (2)
  1. AUGMENTIN '500' [Suspect]
     Indication: INFLUENZA LIKE ILLNESS
     Dosage: 1/2 TAB (250 MG)   X1 DOSE   ORAL
     Route: 048
     Dates: start: 19960103
  2. AUGMENTIN '500' [Suspect]
     Indication: WHITE BLOOD CELL COUNT INCREASED
     Dosage: 1/2 TAB (250 MG)   X1 DOSE   ORAL
     Route: 048
     Dates: start: 19960103

REACTIONS (13)
  - CUSHING'S SYNDROME [None]
  - DERMATOMYOSITIS [None]
  - DYSPNOEA [None]
  - EYE SWELLING [None]
  - LIVER DISORDER [None]
  - LUNG DISORDER [None]
  - MYOCARDIAL INFARCTION [None]
  - OEDEMA PERIPHERAL [None]
  - OSTEOPOROSIS [None]
  - OXYGEN SUPPLEMENTATION [None]
  - PERICARDITIS [None]
  - RESPIRATORY FAILURE [None]
  - SWELLING FACE [None]
